FAERS Safety Report 4369081-8 (Version None)
Quarter: 2004Q2

REPORT INFORMATION
  Report Type: 
  Country: None (occurrence: None)
  Receive Date: 20040527
  Receipt Date: 20040507
  Transmission Date: 20050107
  Serious: No
  Sender: FDA-Public Use
  Company Number: F01200400825

PATIENT
  Age: 78 Year
  Sex: Male

DRUGS (7)
  1. OXALIPLATIN [Suspect]
     Indication: COLORECTAL CANCER
     Dosage: 100 MG/M2 Q3W, INTRAVENOUS NOS
     Route: 042
     Dates: start: 20040326, end: 20040326
  2. CAPECITABINE - TABLET - 650 MG/M2 [Suspect]
     Dosage: 650 MG/M2 TWICE DAILY FROM D1 TO D15, Q3W ORAL
     Route: 048
     Dates: start: 20040326, end: 20040326
  3. AVASTIN [Suspect]
     Dosage: 7.5 MG/KG OVER 30-90 MINUTES IV INFUSION ON DAY 1, Q3W INTRAVENOUS NOS
     Route: 042
     Dates: start: 20040326, end: 20040326
  4. FUROSEMIDE [Concomitant]
  5. POTASSIUM CHLORIDE [Concomitant]
  6. TAMSULOSIN HYDROCHLORIDE [Concomitant]
  7. LEVOXYL [Concomitant]

REACTIONS (4)
  - BLOOD CHLORIDE DECREASED [None]
  - HYPOALBUMINAEMIA [None]
  - HYPOPROTEINAEMIA [None]
  - TRANSIENT ISCHAEMIC ATTACK [None]
